FAERS Safety Report 16966518 (Version 9)
Quarter: 2020Q2

REPORT INFORMATION
  Report Type: Report from Study
  Country: BR (occurrence: BR)
  Receive Date: 20191028
  Receipt Date: 20200518
  Transmission Date: 20200713
  Serious: Yes (Other)
  Sender: FDA-Public Use
  Company Number: NVSC2019BR001631

PATIENT
  Age: 59 Year
  Sex: Female
  Weight: 78 kg

DRUGS (10)
  1. FOLIC ACID. [Concomitant]
     Active Substance: FOLIC ACID
     Indication: PRODUCT USED FOR UNKNOWN INDICATION
     Dosage: 1 TABLET 4 TIMES PER WEEK
     Route: 048
     Dates: start: 2010
  2. COSENTYX [Suspect]
     Active Substance: SECUKINUMAB
     Indication: PSORIASIS
     Dosage: 300 MG (WEEKLY), FOR 5 WEEKS
     Route: 058
     Dates: start: 20190905, end: 20191005
  3. COSENTYX [Suspect]
     Active Substance: SECUKINUMAB
     Dosage: UNK
     Route: 065
  4. NORTRIPTYLINE HYDROCHLORIDE. [Concomitant]
     Active Substance: NORTRIPTYLINE HYDROCHLORIDE
     Indication: DEPRESSION
     Dosage: 2 DF AT NIGHT
     Route: 048
     Dates: start: 2010
  5. COSENTYX [Suspect]
     Active Substance: SECUKINUMAB
     Dosage: 300 MG, QMO
     Route: 058
     Dates: start: 20191105
  6. COSENTYX [Suspect]
     Active Substance: SECUKINUMAB
     Indication: PSORIATIC ARTHROPATHY
     Dosage: UNK
     Route: 065
  7. COSENTYX [Suspect]
     Active Substance: SECUKINUMAB
     Dosage: UNK
     Route: 065
     Dates: start: 20191206
  8. COSENTYX [Suspect]
     Active Substance: SECUKINUMAB
     Dosage: UNK
     Route: 065
     Dates: start: 20200105
  9. ALEKTOS [Concomitant]
     Active Substance: BILASTINE
     Indication: PRODUCT USED FOR UNKNOWN INDICATION
     Dosage: UNK, QD
     Route: 065
  10. VENLAFAXINE HYDROCHLORIDE. [Concomitant]
     Active Substance: VENLAFAXINE HYDROCHLORIDE
     Indication: DEPRESSION
     Dosage: 225 MG
     Route: 048
     Dates: start: 2010

REACTIONS (38)
  - Arthralgia [Recovered/Resolved]
  - Tendonitis [Not Recovered/Not Resolved]
  - Inflammation [Not Recovered/Not Resolved]
  - Skin exfoliation [Unknown]
  - Skin lesion [Recovering/Resolving]
  - Drug ineffective [Not Recovered/Not Resolved]
  - Measles [Unknown]
  - Peripheral swelling [Not Recovered/Not Resolved]
  - Macule [Not Recovered/Not Resolved]
  - Weight increased [Not Recovered/Not Resolved]
  - Pain [Recovering/Resolving]
  - Rash [Recovered/Resolved]
  - Psoriatic arthropathy [Not Recovered/Not Resolved]
  - Cystitis [Recovered/Resolved]
  - Rash papular [Recovered/Resolved]
  - Limb injury [Recovering/Resolving]
  - Asthenia [Unknown]
  - Weight bearing difficulty [Unknown]
  - Bursitis [Unknown]
  - Cough [Unknown]
  - Psoriasis [Not Recovered/Not Resolved]
  - Erythema [Recovered/Resolved]
  - Joint injury [Recovering/Resolving]
  - Dysphagia [Not Recovered/Not Resolved]
  - Osteitis [Not Recovered/Not Resolved]
  - Pain in extremity [Not Recovered/Not Resolved]
  - Neck pain [Unknown]
  - Pharyngeal inflammation [Unknown]
  - Anxiety [Unknown]
  - Eye disorder [Unknown]
  - Gait disturbance [Not Recovered/Not Resolved]
  - Throat irritation [Unknown]
  - Bone pain [Not Recovered/Not Resolved]
  - Psoriasis [Recovered/Resolved]
  - Pulpitis dental [Not Recovered/Not Resolved]
  - Oral discomfort [Not Recovered/Not Resolved]
  - Swelling [Unknown]
  - Musculoskeletal discomfort [Not Recovered/Not Resolved]

NARRATIVE: CASE EVENT DATE: 201909
